FAERS Safety Report 6211199-9 (Version None)
Quarter: 2009Q2

REPORT INFORMATION
  Report Type: 
  Country: None (occurrence: None)
  Receive Date: 20090602
  Receipt Date: 20090526
  Transmission Date: 20091009
  Serious: Yes (Death, Hospitalization)
  Sender: FDA-Public Use
  Company Number: US-BIOGENIDEC-186267

PATIENT
  Sex: Female
  Weight: 69 kg

DRUGS (20)
  1. AVONEX [Suspect]
     Indication: MULTIPLE SCLEROSIS
     Route: 030
     Dates: start: 19961104, end: 20030101
  2. AVONEX [Suspect]
     Route: 030
     Dates: start: 20030101, end: 20041201
  3. AVONEX [Suspect]
     Route: 030
     Dates: start: 20041201, end: 20050215
  4. PLAQUENIL [Concomitant]
     Indication: ARTHRITIS
     Dates: start: 19890101
  5. BACLOFEN [Concomitant]
     Indication: MUSCULOSKELETAL STIFFNESS
     Dates: start: 19890101
  6. ZANTAC [Concomitant]
     Indication: GASTRIC DISORDER
     Dates: start: 19900101
  7. PREMARIN [Concomitant]
     Indication: HORMONE REPLACEMENT THERAPY
     Dates: start: 19900101
  8. PREMARIN CREAM [Concomitant]
  9. AMBIEN [Concomitant]
  10. GLUCOSAMINE [Concomitant]
  11. CHONDROITIN [Concomitant]
  12. PRILOSEC [Concomitant]
  13. LINOLEIC ACID [Concomitant]
  14. ADVAIR DISKUS 100/50 [Concomitant]
  15. ALBUTEROL [Concomitant]
  16. ATARAX [Concomitant]
  17. PREVACID [Concomitant]
  18. PERCOCET [Concomitant]
  19. DEMADEX [Concomitant]
  20. ARANSESP [Concomitant]

REACTIONS (15)
  - CHRONIC HEPATIC FAILURE [None]
  - ERYTHEMA [None]
  - FUNGAL INFECTION [None]
  - INFLUENZA LIKE ILLNESS [None]
  - LYMPHADENOPATHY [None]
  - MICROCYTIC ANAEMIA [None]
  - MUSCULAR WEAKNESS [None]
  - MYELOFIBROSIS [None]
  - NASOPHARYNGITIS [None]
  - OEDEMA PERIPHERAL [None]
  - PANCYTOPENIA [None]
  - PRURITUS [None]
  - RASH [None]
  - RETROPERITONEAL HAEMORRHAGE [None]
  - URINARY RETENTION [None]
